FAERS Safety Report 23624078 (Version 1)
Quarter: 2024Q1

REPORT INFORMATION
  Report Type: Spontaneous
  Country: GB (occurrence: GB)
  Receive Date: 20240312
  Receipt Date: 20240312
  Transmission Date: 20240409
  Serious: Yes (Other)
  Sender: FDA-Public Use
  Company Number: None

PATIENT
  Age: 46 Year
  Sex: Female

DRUGS (12)
  1. CYCLOSPORINE [Suspect]
     Active Substance: CYCLOSPORINE
     Indication: Product used for unknown indication
     Dosage: UNK
     Route: 065
  2. CALCIUM CARBONATE\CHOLECALCIFEROL [Concomitant]
     Active Substance: CALCIUM CARBONATE\CHOLECALCIFEROL
     Dosage: 1 DOSAGE FORM, BID
     Route: 065
  3. COCODAMOL [Concomitant]
     Active Substance: ACETAMINOPHEN\CODEINE PHOSPHATE
     Dosage: 30MG/500MG CAPSULES TAKE 1 OR 2 4 TIMES/DAY- TAKES 2 TABLETS PRN
     Route: 065
  4. AMLODIPINE [Concomitant]
     Active Substance: AMLODIPINE BESYLATE
     Dosage: 5 MILLIGRAM, QD
     Route: 065
  5. FERROUS FUMARATE [Concomitant]
     Active Substance: FERROUS FUMARATE
     Dosage: 210 MILLIGRAM, QD (AS A LOWMAINTENANCE DOSE)
     Route: 065
  6. FEXOFENADINE [Concomitant]
     Active Substance: FEXOFENADINE HYDROCHLORIDE
     Indication: Pruritus
     Dosage: 180 MILLIGRAM, QD
     Route: 065
  7. LEVOTHYROXINE [Concomitant]
     Active Substance: LEVOTHYROXINE\LEVOTHYROXINE SODIUM
     Dosage: 50MCG OR 100MCG TABLET. EACH MORNING
     Route: 065
  8. CARBOMER [Concomitant]
     Active Substance: CARBOMER
     Indication: Endocrine ophthalmopathy
     Dosage: QD (USES IN BE PRN - FREQUENT DAILY USE), 0.2% EYE DROPS ONE DROP 3-4 TIMES/DAY FOR THYROID EYE DISE
     Route: 065
  9. NORETHINDRONE [Concomitant]
     Active Substance: NORETHINDRONE
     Dosage: 5 MILLIGRAM, TID (5MG TABLETS 1 TDS FOR 3 WEEKS - TAKES FOR 3 WEEKS THEN HAS ONE WEEK BREAK WHEN SHE
     Route: 065
  10. RISEDRONATE SODIUM [Concomitant]
     Active Substance: RISEDRONATE SODIUM
     Dosage: 35 MILLIGRAM, QW (ON SUNDAYS)
     Route: 065
  11. OMEPRAZOLE [Concomitant]
     Active Substance: OMEPRAZOLE
     Dosage: 20 MILLIGRAM, BID
     Route: 065
  12. PREDNISOLONE [Concomitant]
     Active Substance: PREDNISOLONE
     Dosage: NOTE 24/1/24 DOCUMENTS INCREASED PREDNISOLONE TO 20MG OD
     Route: 065

REACTIONS (2)
  - Renal impairment [Recovered/Resolved]
  - Blood creatinine increased [Unknown]
